FAERS Safety Report 25131626 (Version 2)
Quarter: 2025Q1

REPORT INFORMATION
  Report Type: Spontaneous
  Country: LT (occurrence: LT)
  Receive Date: 20250327
  Receipt Date: 20250331
  Transmission Date: 20250408
  Serious: Yes (Death, Other)
  Sender: PURDUE
  Company Number: LT-002147023-NVSC2025LT041014

PATIENT

DRUGS (25)
  1. MORPHINE SULFATE [Suspect]
     Active Substance: MORPHINE SULFATE
     Indication: Foetal exposure during pregnancy
     Route: 064
  2. MORPHINE SULFATE [Suspect]
     Active Substance: MORPHINE SULFATE
     Indication: Foetal exposure during pregnancy
     Route: 064
  3. DICLOFENAC [Suspect]
     Active Substance: DICLOFENAC
     Indication: Foetal exposure during pregnancy
     Route: 064
  4. IBUPROFEN [Suspect]
     Active Substance: IBUPROFEN
     Indication: Foetal exposure during pregnancy
     Route: 064
  5. AMOXICILLIN\CLAVULANIC ACID [Suspect]
     Active Substance: AMOXICILLIN\CLAVULANIC ACID
     Indication: Foetal exposure during pregnancy
     Route: 064
  6. AMOXICILLIN\CLAVULANIC ACID [Suspect]
     Active Substance: AMOXICILLIN\CLAVULANIC ACID
     Route: 064
  7. OMEPRAZOLE [Suspect]
     Active Substance: OMEPRAZOLE
     Indication: Foetal exposure during pregnancy
     Route: 064
  8. OMEPRAZOLE [Suspect]
     Active Substance: OMEPRAZOLE
     Route: 064
  9. DEXAMETHASONE [Suspect]
     Active Substance: DEXAMETHASONE
     Indication: Foetal exposure during pregnancy
     Route: 064
     Dates: start: 20201219
  10. MEROPENEM [Suspect]
     Active Substance: MEROPENEM
     Indication: Foetal exposure during pregnancy
     Route: 064
     Dates: start: 20201219
  11. FLUCONAZOLE [Suspect]
     Active Substance: FLUCONAZOLE
     Indication: Foetal exposure during pregnancy
     Route: 064
  12. NOREPINEPHRINE BITARTRATE [Suspect]
     Active Substance: NOREPINEPHRINE BITARTRATE
     Indication: Foetal exposure during pregnancy
     Route: 064
  13. DEXMEDETOMIDINE [Suspect]
     Active Substance: DEXMEDETOMIDINE
     Indication: Foetal exposure during pregnancy
     Route: 064
  14. LORAZEPAM [Suspect]
     Active Substance: LORAZEPAM
     Indication: Foetal exposure during pregnancy
     Route: 064
  15. PROPOFOL [Suspect]
     Active Substance: PROPOFOL
     Indication: Foetal exposure during pregnancy
     Route: 064
  16. METOPROLOL [Suspect]
     Active Substance: METOPROLOL
     Indication: Foetal exposure during pregnancy
     Route: 064
  17. BROMOCRIPTINE [Suspect]
     Active Substance: BROMOCRIPTINE
     Indication: Foetal exposure during pregnancy
     Route: 064
  18. VANCOMYCIN [Suspect]
     Active Substance: VANCOMYCIN
     Indication: Foetal exposure during pregnancy
     Route: 064
     Dates: start: 20201219
  19. DIPRIVAN [Suspect]
     Active Substance: PROPOFOL
     Indication: Foetal exposure during pregnancy
     Route: 064
  20. DIPRIVAN [Suspect]
     Active Substance: PROPOFOL
     Route: 064
  21. DIPRIVAN [Suspect]
     Active Substance: PROPOFOL
     Route: 064
  22. DECADRON (DEXAMETHASONE SODIUM PHOSPHATE) [Suspect]
     Active Substance: DEXAMETHASONE SODIUM PHOSPHATE
     Indication: Foetal exposure during pregnancy
     Route: 064
     Dates: start: 20201219
  23. DECADRON (DEXAMETHASONE SODIUM PHOSPHATE) [Suspect]
     Active Substance: DEXAMETHASONE SODIUM PHOSPHATE
     Route: 064
     Dates: start: 20201219
  24. DECADRON (DEXAMETHASONE SODIUM PHOSPHATE) [Suspect]
     Active Substance: DEXAMETHASONE SODIUM PHOSPHATE
     Route: 064
     Dates: start: 20201219
  25. MORPHINE SULFATE [Suspect]
     Active Substance: MORPHINE SULFATE
     Indication: Foetal exposure during pregnancy

REACTIONS (2)
  - Foetal death [Fatal]
  - Foetal exposure during pregnancy [Unknown]
